FAERS Safety Report 5400736-X (Version None)
Quarter: 2007Q3

REPORT INFORMATION
  Report Type: 
  Country: None (occurrence: None)
  Receive Date: 20070726
  Receipt Date: 20070718
  Transmission Date: 20080115
  Serious: Yes (Other)
  Sender: FDA-Public Use
  Company Number: 2007BI012665

PATIENT
  Age: 55 Year
  Sex: Female
  Weight: 58.514 kg

DRUGS (8)
  1. TYSABRI [Suspect]
     Indication: MULTIPLE SCLEROSIS
     Dosage: 300 MG;QM; IV
     Route: 042
     Dates: start: 20070108
  2. 4-AMINOPYRIDINE [Concomitant]
  3. CHONDROITIN [Concomitant]
  4. IBUPROFEN [Concomitant]
  5. INDERAL [Concomitant]
  6. OXYTROL [Concomitant]
  7. PROVIGIL [Concomitant]
  8. RITALIN [Concomitant]

REACTIONS (3)
  - DEEP VEIN THROMBOSIS [None]
  - POST PROCEDURAL COMPLICATION [None]
  - SCIATICA [None]
